FAERS Safety Report 24207375 (Version 1)
Quarter: 2024Q3

REPORT INFORMATION
  Report Type: Report from Study
  Country: US (occurrence: US)
  Receive Date: 20240813
  Receipt Date: 20240813
  Transmission Date: 20241017
  Serious: Yes (Other)
  Sender: ABBVIE
  Company Number: US-ABBVIE-5875852

PATIENT
  Sex: Female

DRUGS (1)
  1. HUMIRA [Suspect]
     Active Substance: ADALIMUMAB
     Indication: Product used for unknown indication
     Dosage: CITRATE FREE
     Route: 058
     Dates: start: 20180316

REACTIONS (4)
  - Hernia [Unknown]
  - Injection site pain [Recovered/Resolved]
  - Foot operation [Unknown]
  - Knee operation [Unknown]

NARRATIVE: CASE EVENT DATE: 20230101
